FAERS Safety Report 8511380-X (Version None)
Quarter: 2012Q3

REPORT INFORMATION
  Report Type: 
  Country: None (occurrence: None)
  Receive Date: 20120716
  Receipt Date: 20120711
  Transmission Date: 20120928
  Serious: Yes (Hospitalization, Other)
  Sender: FDA-Public Use
  Company Number: US-ASTELLAS-2012US005672

PATIENT
  Sex: Male

DRUGS (1)
  1. ERLOTINIB HYDROCHLORIDE [Suspect]
     Indication: LUNG CARCINOMA CELL TYPE UNSPECIFIED STAGE 0
     Dosage: 150 MG, UID/QD
     Route: 048
     Dates: start: 20120526, end: 20120601

REACTIONS (5)
  - PEPTIC ULCER [None]
  - HAEMATEMESIS [None]
  - METASTASES TO LIVER [None]
  - GASTRITIS [None]
  - OESOPHAGEAL VARICES HAEMORRHAGE [None]
